FAERS Safety Report 17670604 (Version 1)
Quarter: 2020Q2

REPORT INFORMATION
  Report Type: Report from Study
  Country: None (occurrence: US)
  Receive Date: 20200415
  Receipt Date: 20200415
  Transmission Date: 20200713
  Serious: Yes (Hospitalization)
  Sender: FDA-Public Use
  Company Number: US-ABBVIE-19K-163-2971654-00

PATIENT
  Age: 71 Year
  Sex: Female
  Weight: 46.31 kg

DRUGS (1)
  1. HUMIRA [Suspect]
     Active Substance: ADALIMUMAB
     Indication: CROHN^S DISEASE
     Route: 058
     Dates: start: 2010

REACTIONS (5)
  - Nephrolithiasis [Recovered/Resolved]
  - Renal impairment [Not Recovered/Not Resolved]
  - Blood potassium decreased [Not Recovered/Not Resolved]
  - Dehydration [Not Recovered/Not Resolved]
  - Ill-defined disorder [Unknown]

NARRATIVE: CASE EVENT DATE: 201910
